FAERS Safety Report 5719336-7 (Version None)
Quarter: 2008Q2

REPORT INFORMATION
  Report Type: 
  Country: None (occurrence: None)
  Receive Date: 20080428
  Receipt Date: 20080414
  Transmission Date: 20081010
  Serious: Yes (Other)
  Sender: FDA-Public Use
  Company Number: US-ELI_LILLY_AND_COMPANY-US200804003681

PATIENT
  Sex: Male

DRUGS (4)
  1. FORTEO [Suspect]
     Indication: OSTEOPOROSIS
  2. PLAVIX [Concomitant]
  3. NAPROSYN [Concomitant]
  4. ASPIRIN [Concomitant]
     Dosage: 81 MG, UNK

REACTIONS (2)
  - NEPHROLITHIASIS [None]
  - URINARY TRACT OBSTRUCTION [None]
